FAERS Safety Report 25824914 (Version 1)
Quarter: 2025Q3

REPORT INFORMATION
  Report Type: Spontaneous
  Country: US (occurrence: US)
  Receive Date: 20250919
  Receipt Date: 20250919
  Transmission Date: 20251020
  Serious: No
  Sender: PFIZER
  Company Number: US-PFIZER INC-202500183736

PATIENT
  Age: 35 Year
  Sex: Female

DRUGS (3)
  1. PAXLOVID [Suspect]
     Active Substance: NIRMATRELVIR\RITONAVIR
     Dates: start: 20250915
  2. LAMOTRIGINE [Concomitant]
     Active Substance: LAMOTRIGINE
     Dates: start: 20220101
  3. VILAZODONE [Concomitant]
     Active Substance: VILAZODONE
     Dates: start: 20230101

REACTIONS (5)
  - Abdominal pain upper [Recovering/Resolving]
  - Dysgeusia [Recovering/Resolving]
  - Pain [Unknown]
  - Maternal exposure during pregnancy [Recovering/Resolving]
  - Poor quality product administered [Unknown]

NARRATIVE: CASE EVENT DATE: 20250915
